FAERS Safety Report 15215678 (Version 2)
Quarter: 2018Q3

REPORT INFORMATION
  Report Type: Spontaneous
  Country: JP (occurrence: JP)
  Receive Date: 20180730
  Receipt Date: 20180803
  Transmission Date: 20181010
  Serious: Yes (Other)
  Sender: FDA-Public Use
  Company Number: JP-PFM-2018-08608

PATIENT

DRUGS (1)
  1. HEMANGIOL [Suspect]
     Active Substance: PROPRANOLOL HYDROCHLORIDE
     Indication: INFANTILE HAEMANGIOMA
     Dosage: UNK
     Route: 048

REACTIONS (5)
  - Bradycardia [Unknown]
  - Contraindicated product administered [Unknown]
  - Apnoeic attack [Unknown]
  - Drug administered to patient of inappropriate age [Unknown]
  - Off label use [Unknown]
